FAERS Safety Report 15325753 (Version 1)
Quarter: 2018Q3

REPORT INFORMATION
  Report Type: Spontaneous
  Country: US (occurrence: US)
  Receive Date: 20180822
  Receipt Date: 20180822
  Transmission Date: 20181010
  Serious: Yes (Other)
  Sender: FDA-Public Use
  Company Number: None

PATIENT
  Age: 47 Year
  Sex: Female
  Weight: 56.25 kg

DRUGS (3)
  1. VENLAFAXINE XR 150 MG [Suspect]
     Active Substance: VENLAFAXINE HYDROCHLORIDE
     Indication: ANXIETY
     Dosage: ?          QUANTITY:1 CAPSULE(S);?
     Route: 048
     Dates: start: 20180808
  2. SYNTHROID [Concomitant]
     Active Substance: LEVOTHYROXINE SODIUM
  3. FOSAMAX [Concomitant]
     Active Substance: ALENDRONATE SODIUM

REACTIONS (10)
  - Anxiety [None]
  - Decreased appetite [None]
  - Chest discomfort [None]
  - Crying [None]
  - Hypophagia [None]
  - General symptom [None]
  - Obsessive-compulsive disorder [None]
  - Insomnia [None]
  - Mental disorder [None]
  - Dyspnoea [None]

NARRATIVE: CASE EVENT DATE: 20180810
